FAERS Safety Report 18100392 (Version 3)
Quarter: 2021Q2

REPORT INFORMATION
  Report Type: Report from Study
  Country: US (occurrence: US)
  Receive Date: 20200731
  Receipt Date: 20210629
  Transmission Date: 20210717
  Serious: Yes (Other)
  Sender: FDA-Public Use
  Company Number: US-TEVA-2020-US-1804818

PATIENT
  Age: 28 Year
  Sex: Female

DRUGS (1)
  1. COPAXONE [Suspect]
     Active Substance: GLATIRAMER ACETATE
     Dates: start: 20200710, end: 20200717

REACTIONS (16)
  - Hypothermia [Recovered/Resolved]
  - Throat tightness [Unknown]
  - Chills [Recovered/Resolved]
  - Chest pain [Unknown]
  - Depression [Unknown]
  - Anxiety [Recovering/Resolving]
  - Cognitive disorder [Unknown]
  - Injection site discomfort [Unknown]
  - Immediate post-injection reaction [Unknown]
  - Pain [Unknown]
  - Muscle tightness [Unknown]
  - Maternal exposure during pregnancy [Unknown]
  - Fatigue [Unknown]
  - Dizziness [Unknown]
  - Myalgia [Unknown]
  - Peripheral coldness [Unknown]

NARRATIVE: CASE EVENT DATE: 202007
